FAERS Safety Report 17988642 (Version 3)
Quarter: 2020Q4

REPORT INFORMATION
  Report Type: Spontaneous
  Country: US (occurrence: US)
  Receive Date: 20200707
  Receipt Date: 20201102
  Transmission Date: 20210113
  Serious: Yes (Other)
  Sender: FDA-Public Use
  Company Number: US-PFIZER INC-2020259332

PATIENT
  Age: 79 Year
  Sex: Female
  Weight: 55.34 kg

DRUGS (6)
  1. BRAFTOVI [Suspect]
     Active Substance: ENCORAFENIB
     Dosage: 450 MG
  2. MAGNESIUM [Concomitant]
     Active Substance: MAGNESIUM
  3. ERBITUX [Suspect]
     Active Substance: CETUXIMAB
     Dosage: UNK, WEEKLY (INFUSION WEEKLY ON MONDAY^S)
  4. MEKTOVI [Suspect]
     Active Substance: BINIMETINIB
     Indication: COLON CANCER STAGE IV
     Dosage: 60 MG, DAILY (15MG 4 TABLETS BY MOUTH DAILY)
     Route: 048
  5. MEKTOVI [Suspect]
     Active Substance: BINIMETINIB
     Dosage: 45 MG
  6. BRAFTOVI [Suspect]
     Active Substance: ENCORAFENIB
     Indication: COLON CANCER METASTATIC
     Dosage: 225 MG, DAILY (75MG 3 CAPSULE BY MOUTH DAILY)
     Route: 048

REACTIONS (11)
  - Internal haemorrhage [Unknown]
  - Fatigue [Unknown]
  - Haemorrhoidal haemorrhage [Unknown]
  - Haemorrhoids [Unknown]
  - Liver disorder [Recovered/Resolved]
  - Gait disturbance [Unknown]
  - Diarrhoea [Recovered/Resolved]
  - Nausea [Unknown]
  - Blood creatinine abnormal [Unknown]
  - Dyspnoea [Unknown]
  - Renal disorder [Unknown]

NARRATIVE: CASE EVENT DATE: 201910
